FAERS Safety Report 5925251-6 (Version None)
Quarter: 2008Q4

REPORT INFORMATION
  Report Type: 
  Country: None (occurrence: None)
  Receive Date: 20081020
  Receipt Date: 20081020
  Transmission Date: 20090506
  Serious: Yes (Other)
  Sender: FDA-Public Use
  Company Number: None

PATIENT
  Age: 51 Year
  Sex: Female
  Weight: 68.9467 kg

DRUGS (2)
  1. METRONIDAZOLE [Suspect]
     Indication: PERIODONTAL OPERATION
     Dosage: 1 EVERY 8 HOURS PO
     Route: 048
     Dates: start: 20081007, end: 20081017
  2. AMOXICILLIN [Suspect]
     Indication: PERIODONTAL OPERATION
     Dosage: 1 EVERY 8 HOURS PO
     Route: 048
     Dates: start: 20081007, end: 20081016

REACTIONS (6)
  - ASTHENIA [None]
  - CHANGE OF BOWEL HABIT [None]
  - DIZZINESS [None]
  - FREQUENT BOWEL MOVEMENTS [None]
  - MUSCLE SPASMS [None]
  - VERTIGO [None]
